FAERS Safety Report 12857030 (Version 1)
Quarter: 2016Q4

REPORT INFORMATION
  Report Type: Spontaneous
  Country: US (occurrence: US)
  Receive Date: 20161018
  Receipt Date: 20161018
  Transmission Date: 20170207
  Serious: No
  Sender: FDA-Public Use
  Company Number: US-PFIZER INC-2016477959

PATIENT
  Age: 56 Year
  Sex: Female
  Weight: 85 kg

DRUGS (1)
  1. KERYDIN [Suspect]
     Active Substance: TAVABOROLE
     Indication: ONYCHOMYCOSIS
     Dosage: UNK
     Route: 061

REACTIONS (3)
  - Pruritus [Unknown]
  - Wrong technique in product usage process [Unknown]
  - Product leakage [Unknown]

NARRATIVE: CASE EVENT DATE: 20161011
